FAERS Safety Report 6319926-7 (Version None)
Quarter: 2009Q3

REPORT INFORMATION
  Report Type: 
  Country: None (occurrence: None)
  Receive Date: 20090822
  Receipt Date: 20081010
  Transmission Date: 20100115
  Serious: No
  Sender: FDA-Public Use
  Company Number: US-ABBOTT-08P-163-0481323-00

PATIENT
  Sex: Female

DRUGS (5)
  1. NIASPAN [Suspect]
     Indication: HYPERCHOLESTEROLAEMIA
  2. ASPIRIN [Concomitant]
     Indication: DRUG USE FOR UNKNOWN INDICATION
  3. LISINOPRIL [Concomitant]
     Indication: HYPERTENSION
  4. OMEPRAZOLE MAGNESIUM [Concomitant]
     Indication: DRUG USE FOR UNKNOWN INDICATION
  5. LEVOTHYROXINE SODIUM [Concomitant]
     Indication: HYPOTHYROIDISM

REACTIONS (1)
  - HEADACHE [None]
